FAERS Safety Report 5336916-1 (Version None)
Quarter: 2007Q2

REPORT INFORMATION
  Report Type: 
  Country: None (occurrence: None)
  Receive Date: 20070529
  Receipt Date: 20070518
  Transmission Date: 20071010
  Serious: Yes (Other)
  Sender: FDA-Public Use
  Company Number: PHEH2007US05175

PATIENT
  Age: 25 Year
  Sex: Female

DRUGS (2)
  1. ZELNORM [Suspect]
     Indication: IRRITABLE BOWEL SYNDROME
  2. NEXIUM [Concomitant]

REACTIONS (6)
  - BREAST PAIN [None]
  - DYSPEPSIA [None]
  - DYSPNOEA [None]
  - HAEMATOCHEZIA [None]
  - MUSCULOSKELETAL CHEST PAIN [None]
  - RESPIRATORY TRACT CONGESTION [None]
